FAERS Safety Report 8953539 (Version 1)
Quarter: 2012Q4

REPORT INFORMATION
  Report Type: 
  Country: CA (occurrence: CA)
  Receive Date: 20121206
  Receipt Date: 20121206
  Transmission Date: 20130627
  Serious: Yes (Other)
  Sender: FDA-Public Use
  Company Number: CA-ASTRAZENECA-2012SE89621

PATIENT

DRUGS (1)
  1. CRESTOR [Suspect]
     Route: 048

REACTIONS (5)
  - Carpal tunnel syndrome [Unknown]
  - Type 2 diabetes mellitus [Unknown]
  - Fatigue [Unknown]
  - Rhabdomyolysis [Unknown]
  - Urticaria [Unknown]
